FAERS Safety Report 7690935-9 (Version None)
Quarter: 2011Q3

REPORT INFORMATION
  Report Type: 
  Country: None (occurrence: None)
  Receive Date: 20110818
  Receipt Date: 20110805
  Transmission Date: 20111222
  Serious: No
  Sender: FDA-Public Use
  Company Number: US-B.I. PHARMACEUTICALS,INC./RIDGEFIELD-2011-BP-19359BP

PATIENT
  Sex: Female

DRUGS (4)
  1. PRADAXA [Suspect]
     Indication: ATRIAL FIBRILLATION
     Dosage: 300 MG
     Route: 048
     Dates: start: 20110701, end: 20110701
  2. CALTRATE 600 D [Concomitant]
     Indication: OSTEOPOROSIS
  3. CLONAZEPAM [Concomitant]
     Indication: ESSENTIAL TREMOR
  4. BISOPROLOL FUMARATE [Concomitant]
     Indication: ATRIAL FIBRILLATION
     Dosage: 5 MG

REACTIONS (2)
  - HYPOTENSION [None]
  - OESOPHAGEAL PAIN [None]
